FAERS Safety Report 22603918 (Version 1)
Quarter: 2023Q2

REPORT INFORMATION
  Report Type: Report from Study
  Country: IN (occurrence: IN)
  Receive Date: 20230615
  Receipt Date: 20230615
  Transmission Date: 20230722
  Serious: Yes (Death, Other)
  Sender: FDA-Public Use
  Company Number: IN-002147023-PHHY2012IN094783

PATIENT
  Sex: Male

DRUGS (4)
  1. GLIVEC [Suspect]
     Active Substance: IMATINIB MESYLATE
     Indication: Chronic myeloid leukaemia
     Dosage: 400 MG, UNK
     Route: 065
  2. GLIVEC [Suspect]
     Active Substance: IMATINIB MESYLATE
     Dosage: 300 MG, UNK
     Route: 065
  3. GLIVEC [Suspect]
     Active Substance: IMATINIB MESYLATE
     Dosage: 200 MG, UNK
     Route: 065
  4. GLIVEC [Suspect]
     Active Substance: IMATINIB MESYLATE
     Dosage: 200 MG (2 X 100 MG)
     Route: 065

REACTIONS (12)
  - Death [Fatal]
  - Pneumonia [Unknown]
  - Pyrexia [Unknown]
  - Haemoglobin decreased [Unknown]
  - Asthenia [Unknown]
  - Gastric haemorrhage [Unknown]
  - Renal disorder [Unknown]
  - General physical health deterioration [Unknown]
  - Herpes zoster [Unknown]
  - Hypotension [Unknown]
  - White blood cell count decreased [Unknown]
  - Platelet count decreased [Unknown]
